FAERS Safety Report 9171714 (Version 1)
Quarter: 2013Q1

REPORT INFORMATION
  Report Type: Report from Study
  Country: FR (occurrence: FR)
  Receive Date: 20130319
  Receipt Date: 20130319
  Transmission Date: 20140127
  Serious: Yes (Death, Hospitalization)
  Sender: FDA-Public Use
  Company Number: FR-009507513-1211FRA001969

PATIENT
  Age: 49 Year
  Sex: Male
  Weight: 53.7 kg

DRUGS (12)
  1. MK-0518 [Suspect]
     Indication: HIV INFECTION
     Dosage: 400 MG, BID
     Route: 048
     Dates: start: 20120426
  2. EPIVIR [Concomitant]
     Indication: HIV INFECTION
     Dosage: 150 MG, UNK
     Route: 048
     Dates: start: 20120426
  3. ZIAGEN [Concomitant]
     Indication: HIV INFECTION
     Dosage: 300 MG, BID
     Route: 048
     Dates: start: 20120406
  4. SOLU-MEDROL [Concomitant]
     Indication: IMMUNOSUPPRESSANT DRUG THERAPY
     Dosage: 12.5 MG, UNK
     Route: 048
     Dates: start: 20120426
  5. METHADONE HYDROCHLORIDE [Concomitant]
     Indication: DRUG WITHDRAWAL MAINTENANCE THERAPY
     Dosage: 30 MG, QD
     Dates: start: 20100701
  6. CORTANCYL [Concomitant]
     Dosage: 10 MG, QD
  7. CELLCEPT [Concomitant]
     Indication: IMMUNOSUPPRESSANT DRUG THERAPY
     Dosage: 2 G, UNK
     Dates: start: 20120425
  8. PROGRAF [Concomitant]
     Indication: IMMUNOSUPPRESSANT DRUG THERAPY
     Dosage: 1 MG, UNK
     Dates: start: 20120424
  9. AMLOR [Concomitant]
     Dosage: 5 MG, QD
  10. CARDENSIEL [Concomitant]
     Dosage: 5 MG, QD
  11. LASILIX [Concomitant]
     Dosage: 1 G, QD
  12. WELLVONE [Concomitant]
     Dosage: 1400 MG, UNK

REACTIONS (10)
  - Acute endocarditis [Fatal]
  - Sepsis [Recovering/Resolving]
  - General physical health deterioration [Recovered/Resolved]
  - Renal artery stenosis [Recovered/Resolved]
  - Fistula [Unknown]
  - Dyspnoea [Unknown]
  - Infection [Unknown]
  - Pyrexia [Unknown]
  - Pyrexia [Recovering/Resolving]
  - Vomiting [Recovered/Resolved]
